FAERS Safety Report 11261265 (Version 1)
Quarter: 2015Q3

REPORT INFORMATION
  Report Type: Spontaneous
  Country: US (occurrence: US)
  Receive Date: 20150710
  Receipt Date: 20150710
  Transmission Date: 20151125
  Serious: Yes (Other)
  Sender: FDA-Public Use
  Company Number: US-PURDUE-USA-2015-0124786

PATIENT
  Age: 29 Year
  Sex: Male

DRUGS (1)
  1. DILAUDID [Suspect]
     Active Substance: HYDROMORPHONE HYDROCHLORIDE
     Indication: PAIN
     Dosage: UNK, Q2H
     Route: 042

REACTIONS (3)
  - Protein albumin ratio abnormal [Unknown]
  - Gastric ulcer [Unknown]
  - Gastrointestinal disorder [Unknown]
